FAERS Safety Report 8415288-X (Version None)
Quarter: 2012Q2

REPORT INFORMATION
  Report Type: 
  Country: None (occurrence: None)
  Receive Date: 20120606
  Receipt Date: 20120601
  Transmission Date: 20120825
  Serious: No
  Sender: FDA-Public Use
  Company Number: US-PFIZER INC-2012132654

PATIENT
  Age: 48 Year
  Sex: Female

DRUGS (4)
  1. LYRICA [Suspect]
     Dosage: UNK
     Dates: start: 20120101, end: 20120501
  2. IBUPROFEN (ADVIL) [Concomitant]
     Indication: MUSCLE SPASMS
     Dosage: UNK
  3. LORCET-HD [Concomitant]
     Dosage: 10/650 MG, 4X/DAY
  4. OXYCODONE HCL AND ACETAMINOPHEN [Concomitant]
     Indication: SLEEP DISORDER
     Dosage: 10/650 MG, 1X/DAY

REACTIONS (4)
  - AGITATION [None]
  - ANGER [None]
  - TENSION [None]
  - MOOD SWINGS [None]
